FAERS Safety Report 10084527 (Version 2)
Quarter: 2014Q2

REPORT INFORMATION
  Report Type: Report from Study
  Country: MX (occurrence: MX)
  Receive Date: 20140417
  Receipt Date: 20140502
  Transmission Date: 20141212
  Serious: Yes (Death)
  Sender: FDA-Public Use
  Company Number: PHHY2014MX047315

PATIENT
  Age: 92 Year
  Sex: Female

DRUGS (3)
  1. EXELON PATCH [Suspect]
     Dosage: 4.6 MG, DAILY
     Route: 062
     Dates: start: 201205
  2. EXELON PATCH [Suspect]
     Dosage: 9.5 MG, DAILY (10 CM2)
     Route: 062
  3. EXELON PATCH [Suspect]
     Dosage: 13.3 MG, DAILY
     Route: 062

REACTIONS (2)
  - Death [Fatal]
  - Drug ineffective [Unknown]
